FAERS Safety Report 21889425 (Version 1)
Quarter: 2023Q1

REPORT INFORMATION
  Report Type: Spontaneous
  Country: US (occurrence: None)
  Receive Date: 20230119
  Receipt Date: 20230119
  Transmission Date: 20230417
  Serious: Yes (Hospitalization)
  Sender: FDA-Public Use
  Company Number: None

PATIENT
  Sex: Female

DRUGS (3)
  1. EPOPROSTENOL [Suspect]
     Active Substance: EPOPROSTENOL
     Indication: Pulmonary arterial hypertension
     Dosage: OTHER STRENGTH : 1.5MG/VL;?OTHER QUANTITY : 54 NG/KG/MIN;?OTHER FREQUENCY : CONTINUOUS;?
     Route: 042
  2. OPSUMIT [Suspect]
     Active Substance: MACITENTAN
  3. ADEMPAS [Suspect]
     Active Substance: RIOCIGUAT

REACTIONS (4)
  - Complications of transplanted lung [None]
  - Internal haemorrhage [None]
  - Arterial rupture [None]
  - Life support [None]

NARRATIVE: CASE EVENT DATE: 20220901
